FAERS Safety Report 7063335-2 (Version None)
Quarter: 2010Q4

REPORT INFORMATION
  Report Type: 
  Country: None (occurrence: None)
  Receive Date: 20101026
  Receipt Date: 20091119
  Transmission Date: 20110411
  Serious: No
  Sender: FDA-Public Use
  Company Number: US-ABBOTT-09P-163-0610068-00

PATIENT
  Sex: Female
  Weight: 122 kg

DRUGS (3)
  1. LUPRON DEPOT [Suspect]
     Indication: MENORRHAGIA
     Route: 030
     Dates: start: 20091118
  2. LUPRON DEPOT [Suspect]
     Indication: UTERINE LEIOMYOMA
  3. HYDROCHLOROTHIAZIDE [Concomitant]
     Indication: HYPERTENSION

REACTIONS (1)
  - INCORRECT ROUTE OF DRUG ADMINISTRATION [None]
